FAERS Safety Report 19452940 (Version 5)
Quarter: 2025Q3

REPORT INFORMATION
  Report Type: Report from Study
  Country: EU (occurrence: EU)
  Receive Date: 20210623
  Receipt Date: 20250915
  Transmission Date: 20251020
  Serious: Yes (Hospitalization)
  Sender: TAKEDA
  Company Number: EU-SHIRE-FR202007859

PATIENT
  Sex: Male
  Weight: 13 kg

DRUGS (15)
  1. TEDUGLUTIDE [Suspect]
     Active Substance: TEDUGLUTIDE
     Indication: Short-bowel syndrome
     Dosage: 0.65 MILLIGRAM, QD
     Dates: start: 20190521, end: 20200828
  2. TEDUGLUTIDE [Suspect]
     Active Substance: TEDUGLUTIDE
     Dosage: 0.8 MILLIGRAM, QD
     Dates: start: 20200828, end: 20211104
  3. TEDUGLUTIDE [Suspect]
     Active Substance: TEDUGLUTIDE
     Dosage: 0.9 MILLIGRAM, QD
     Dates: start: 20211105, end: 20230822
  4. TEDUGLUTIDE [Suspect]
     Active Substance: TEDUGLUTIDE
     Dosage: 0.05 MILLIGRAM, 4/WEEK
     Dates: start: 20230823
  5. VENOFER [Concomitant]
     Active Substance: IRON SUCROSE
     Indication: Anaemia
     Dosage: 1.0 UNITS,QD
     Dates: start: 20191024, end: 20191024
  6. VENOFER [Concomitant]
     Active Substance: IRON SUCROSE
     Dosage: 115 MILLIGRAM, QD
     Dates: start: 20201126, end: 20201126
  7. VENOFER [Concomitant]
     Active Substance: IRON SUCROSE
     Dosage: 115 MILLIGRAM, QD
     Dates: start: 20201126, end: 20201126
  8. URSODIOL [Concomitant]
     Active Substance: URSODIOL
     Indication: Cholestasis
     Dosage: 4.0 MILLILITER, BID
     Dates: start: 20200612, end: 20210604
  9. Uvesterol vitamine a d e c [Concomitant]
     Indication: Vitamin supplementation
     Dosage: 3 DOSAGE FORM, QD
     Dates: start: 20200327
  10. QUESTRAN [Concomitant]
     Active Substance: CHOLESTYRAMINE
     Indication: Ileectomy
     Dosage: 8 GRAM, BID
     Dates: start: 20150522
  11. ALBUTEROL [Concomitant]
     Active Substance: ALBUTEROL
     Indication: Asthma
     Dosage: UNK UNK, BID
     Dates: start: 20170110
  12. INNOHEP [Concomitant]
     Active Substance: TINZAPARIN SODIUM
     Indication: Embolism
     Dosage: 0.50 MILLILITER, QD
     Dates: start: 20181106
  13. SODIUM FEREDETATE [Concomitant]
     Active Substance: SODIUM FEREDETATE
     Indication: Iron deficiency
     Dosage: 10 MILLILITER, BID
     Dates: start: 20181003
  14. SODIUM BICARBONATE [Concomitant]
     Active Substance: SODIUM BICARBONATE
     Indication: Diarrhoea
     Dosage: 500 MILLIGRAM, TID
     Dates: start: 20160921
  15. INFLUENZA VIRUS VACCINE [Concomitant]
     Active Substance: INFLUENZA VIRUS VACCINE
     Indication: Antiviral prophylaxis
     Dosage: UNK UNK, QD
     Dates: start: 20191121, end: 20191121

REACTIONS (1)
  - Sleep apnoea syndrome [Recovered/Resolved]

NARRATIVE: CASE EVENT DATE: 20200109
